FAERS Safety Report 16145220 (Version 2)
Quarter: 2019Q3

REPORT INFORMATION
  Report Type: Report from Study
  Country: US (occurrence: US)
  Receive Date: 20190402
  Receipt Date: 20190731
  Transmission Date: 20191004
  Serious: No
  Sender: FDA-Public Use
  Company Number: US-B.I. PHARMACEUTICALS,INC./RIDGEFIELD-2019-BI-014131

PATIENT
  Age: 83 Year
  Sex: Female

DRUGS (1)
  1. OFEV [Suspect]
     Active Substance: NINTEDANIB
     Indication: IDIOPATHIC PULMONARY FIBROSIS
     Route: 048

REACTIONS (6)
  - Dyspnoea [Unknown]
  - Asthenia [Not Recovered/Not Resolved]
  - Dizziness [Unknown]
  - Diarrhoea [Not Recovered/Not Resolved]
  - Cough [Unknown]
  - Oxygen consumption increased [Not Recovered/Not Resolved]

NARRATIVE: CASE EVENT DATE: 20190701
